FAERS Safety Report 24728852 (Version 5)
Quarter: 2025Q1

REPORT INFORMATION
  Report Type: Spontaneous
  Country: JP (occurrence: JP)
  Receive Date: 20241212
  Receipt Date: 20250208
  Transmission Date: 20250408
  Serious: No
  Sender: CSL BEHRING
  Company Number: JP-BEH-2024186145

PATIENT
  Age: 15 Year
  Sex: Male

DRUGS (3)
  1. PRIVIGEN [Suspect]
     Active Substance: HUMAN IMMUNOGLOBULIN G
     Indication: Hypogammaglobulinaemia
     Dosage: UNK UNK, QOW
     Route: 042
  2. IBRUTINIB [Concomitant]
     Active Substance: IBRUTINIB
     Indication: Graft versus host disease
     Route: 065
  3. MICAFUNGIN [Concomitant]
     Active Substance: MICAFUNGIN SODIUM
     Indication: Infection prophylaxis
     Dosage: UNK, QW
     Route: 042

REACTIONS (2)
  - Blood beta-D-glucan positive [Unknown]
  - Misleading laboratory test result [Unknown]
